FAERS Safety Report 9931499 (Version 3)
Quarter: 2014Q1

REPORT INFORMATION
  Report Type: Spontaneous
  Country: ES (occurrence: None)
  Receive Date: 20140224
  Receipt Date: 20140304
  Transmission Date: 20141002
  Serious: Yes (Other)
  Sender: FDA-Public Use
  Company Number: SYM-2014-17708

PATIENT
  Sex: Female

DRUGS (2)
  1. ELIDEL [Suspect]
     Indication: DERMATITIS
     Route: 061
     Dates: start: 200905, end: 2009
  2. MINOCIN (MINOCYCLINE HYDROCHLORIDE) (MINOCYCLINE HYDROCHLORIDE) [Concomitant]

REACTIONS (1)
  - Basal cell carcinoma [None]
